FAERS Safety Report 23324432 (Version 5)
Quarter: 2024Q1

REPORT INFORMATION
  Report Type: Report from Study
  Country: CA (occurrence: CA)
  Receive Date: 20231221
  Receipt Date: 20240205
  Transmission Date: 20240410
  Serious: Yes (Hospitalization)
  Sender: FDA-Public Use
  Company Number: CA-ABBVIE-5546788

PATIENT
  Age: 37 Year
  Sex: Male
  Weight: 73 kg

DRUGS (9)
  1. UPADACITINIB [Suspect]
     Active Substance: UPADACITINIB
     Indication: Dermatitis atopic
     Route: 048
     Dates: start: 20211203, end: 20211216
  2. UPADACITINIB [Suspect]
     Active Substance: UPADACITINIB
     Indication: Dermatitis atopic
     Route: 048
     Dates: start: 20211217, end: 20220131
  3. UPADACITINIB [Suspect]
     Active Substance: UPADACITINIB
     Indication: Dermatitis atopic
     Route: 048
     Dates: start: 20220215, end: 20220407
  4. UPADACITINIB [Suspect]
     Active Substance: UPADACITINIB
     Indication: Dermatitis atopic
     Route: 048
     Dates: start: 20220408, end: 20231110
  5. FERROMAX [Concomitant]
     Indication: Iron deficiency anaemia
     Route: 048
     Dates: start: 20211120
  6. BILASTINE [Concomitant]
     Active Substance: BILASTINE
     Indication: Dermatitis atopic
     Route: 048
     Dates: start: 20220926
  7. PANTOPRAZOLE [Concomitant]
     Active Substance: PANTOPRAZOLE
     Indication: Gastrooesophageal reflux disease
     Route: 048
     Dates: start: 20230705
  8. ZORYVE [Concomitant]
     Active Substance: ROFLUMILAST
     Indication: Dermatitis atopic
     Dosage: TIME INTERVAL: AS NECESSARY: 1 APPLICATION
     Route: 061
     Dates: start: 20230823
  9. DESONIDE [Concomitant]
     Active Substance: DESONIDE
     Indication: Dermatitis atopic
     Dosage: TIME INTERVAL: AS NECESSARY: 0.05% 1 APPLICATION
     Route: 048
     Dates: start: 20220110

REACTIONS (1)
  - Staphylococcal bacteraemia [Recovered/Resolved with Sequelae]

NARRATIVE: CASE EVENT DATE: 20231110
